FAERS Safety Report 24316573 (Version 1)
Quarter: 2024Q3

REPORT INFORMATION
  Report Type: Spontaneous
  Country: FR (occurrence: FR)
  Receive Date: 20240913
  Receipt Date: 20240913
  Transmission Date: 20241017
  Serious: Yes (Other)
  Sender: AUROBINDO
  Company Number: FR-SUN PHARMACEUTICAL INDUSTRIES LTD-2024R1-465277

PATIENT
  Age: 25 Year

DRUGS (1)
  1. ENTECAVIR [Suspect]
     Active Substance: ENTECAVIR
     Indication: Antiviral prophylaxis
     Dosage: UNK
     Route: 065

REACTIONS (1)
  - Hepatitis B reactivation [Recovered/Resolved]
